FAERS Safety Report 6152096-7 (Version None)
Quarter: 2009Q2

REPORT INFORMATION
  Report Type: 
  Country: None (occurrence: None)
  Receive Date: 20090410
  Receipt Date: 20090402
  Transmission Date: 20091009
  Serious: Yes (Hospitalization, Other)
  Sender: FDA-Public Use
  Company Number: PHHY2009DK13030

PATIENT
  Sex: Male

DRUGS (3)
  1. LEPONEX [Suspect]
     Indication: SCHIZOPHRENIA, PARANOID TYPE
     Dosage: UNK
  2. LEPONEX [Suspect]
     Indication: PSYCHOTIC DISORDER
  3. LEPONEX [Suspect]
     Indication: AGITATION

REACTIONS (5)
  - AMNESIA [None]
  - CONVULSION [None]
  - EPILEPSY [None]
  - JOINT DISLOCATION [None]
  - JOINT INJURY [None]
